FAERS Safety Report 4529743-6 (Version None)
Quarter: 2004Q4

REPORT INFORMATION
  Report Type: 
  Country: None (occurrence: None)
  Receive Date: 20041130
  Receipt Date: 20040804
  Transmission Date: 20050328
  Serious: No
  Sender: FDA-Public Use
  Company Number: WAES 0407USA01595

PATIENT
  Age: 14 Year
  Sex: Male
  Weight: 104.7809 kg

DRUGS (1)
  1. ZETIA [Suspect]
     Indication: TYPE IIA HYPERLIPIDAEMIA
     Dosage: 10 MG DAILY PO
     Route: 048
     Dates: start: 20040316

REACTIONS (1)
  - HIGH DENSITY LIPOPROTEIN DECREASED [None]
